FAERS Safety Report 5344380-1 (Version None)
Quarter: 2007Q2

REPORT INFORMATION
  Report Type: 
  Country: None (occurrence: None)
  Receive Date: 20070604
  Receipt Date: 20070531
  Transmission Date: 20071010
  Serious: Yes (Hospitalization)
  Sender: FDA-Public Use
  Company Number: US-BRISTOL-MYERS SQUIBB COMPANY-13790969

PATIENT
  Age: 77 Year
  Sex: Female

DRUGS (7)
  1. IRBESARTAN [Suspect]
     Indication: CARDIAC FAILURE
     Route: 048
     Dates: start: 20050124, end: 20070505
  2. BLINDED: PLACEBO [Suspect]
     Indication: CARDIAC FAILURE
     Route: 048
     Dates: start: 20050124, end: 20070505
  3. ALDACTONE [Concomitant]
     Dates: start: 20051101, end: 20070316
  4. K-DUR 10 [Concomitant]
     Dates: start: 20070201, end: 20070316
  5. BUMEX [Concomitant]
     Dates: start: 20051201, end: 20070514
  6. GLYBURIDE [Concomitant]
     Dates: end: 20070514
  7. SYNTHROID [Concomitant]

REACTIONS (3)
  - HYPERKALAEMIA [None]
  - HYPOGLYCAEMIA [None]
  - RENAL FAILURE [None]
